FAERS Safety Report 5126037-5 (Version None)
Quarter: 2006Q4

REPORT INFORMATION
  Report Type: 
  Country: None (occurrence: None)
  Receive Date: 20061010
  Receipt Date: 20061010
  Transmission Date: 20070319
  Serious: Yes (Hospitalization)
  Sender: FDA-Public Use
  Company Number: None

PATIENT
  Age: 62 Year
  Sex: Female
  Weight: 89.3586 kg

DRUGS (2)
  1. DOCETAXEL [Suspect]
     Indication: BREAST CANCER
     Dosage: 75MG/M2    1 X Q3WKS   IV DRIP
     Route: 041
     Dates: start: 20060525, end: 20060728
  2. CAPECITABINE [Suspect]
     Indication: BREAST CANCER
     Dosage: 1000MG/M2   1 X Q3WKS   PO
     Route: 048
     Dates: start: 20060525, end: 20060728

REACTIONS (8)
  - EFFUSION [None]
  - ERYTHEMA [None]
  - FLUCTUANCE [None]
  - INFECTION [None]
  - PAIN [None]
  - PYREXIA [None]
  - SEROMA [None]
  - WOUND INFECTION [None]
